FAERS Safety Report 25156995 (Version 6)
Quarter: 2025Q2

REPORT INFORMATION
  Report Type: Spontaneous
  Country: CO (occurrence: CO)
  Receive Date: 20250403
  Receipt Date: 20250627
  Transmission Date: 20250717
  Serious: No
  Sender: PFIZER
  Company Number: CO-PFIZER INC-PV202500038727

PATIENT
  Age: 8 Year
  Sex: Male
  Weight: 19 kg

DRUGS (1)
  1. GENOTROPIN [Suspect]
     Active Substance: SOMATROPIN
     Indication: Short stature
     Dosage: 0.6 MG, DAILY
     Route: 058
     Dates: start: 202403, end: 20250411

REACTIONS (5)
  - Injection site pain [Unknown]
  - Device issue [Unknown]
  - Patient-device incompatibility [Unknown]
  - Drug dose omission by device [Unknown]
  - Off label use [Unknown]

NARRATIVE: CASE EVENT DATE: 20250411
